FAERS Safety Report 17105472 (Version 1)
Quarter: 2019Q4

REPORT INFORMATION
  Report Type: Report from Study
  Country: US (occurrence: US)
  Receive Date: 20191203
  Receipt Date: 20191203
  Transmission Date: 20200122
  Serious: Yes (Death)
  Sender: FDA-Public Use
  Company Number: US-PFIZER INC-2019516696

PATIENT

DRUGS (2)
  1. ETOPOSIDE. [Suspect]
     Active Substance: ETOPOSIDE
     Indication: GERM CELL CANCER METASTATIC
     Dosage: 750 MG/M2, CYCLIC (HIGH-DOSE CHEMOTHERAPY, ON DAYS -5, -4, AND -3)
     Route: 042
  2. CARBOPLATIN. [Suspect]
     Active Substance: CARBOPLATIN
     Indication: GERM CELL CANCER METASTATIC
     Dosage: 700 MG/M2, OF BODY SURFACE CYCLIC (HIGH-DOSE CHEMOTHERAPY, ON DAYS -5, -4, AND -3)
     Route: 042

REACTIONS (2)
  - Septic shock [Fatal]
  - Multiple organ dysfunction syndrome [Fatal]
